FAERS Safety Report 7272055-0 (Version None)
Quarter: 2011Q1

REPORT INFORMATION
  Report Type: 
  Country: None (occurrence: None)
  Receive Date: 20110131
  Receipt Date: 20110131
  Transmission Date: 20110831
  Serious: No
  Sender: FDA-Public Use
  Company Number: None

PATIENT
  Age: 24 Year
  Sex: Male
  Weight: 74.8435 kg

DRUGS (1)
  1. CITALOPRAM HYDROBROMIDE [Suspect]
     Indication: ANXIETY
     Dosage: 10 MG DAILY PO
     Route: 048
     Dates: start: 20100520, end: 20100620

REACTIONS (5)
  - DISTURBANCE IN SEXUAL AROUSAL [None]
  - SEXUAL DYSFUNCTION [None]
  - ORGASMIC SENSATION DECREASED [None]
  - PENIS DISORDER [None]
  - LIBIDO DECREASED [None]
